FAERS Safety Report 6424910-9 (Version None)
Quarter: 2009Q4

REPORT INFORMATION
  Report Type: 
  Country: None (occurrence: None)
  Receive Date: 20091102
  Receipt Date: 20091102
  Transmission Date: 20100525
  Serious: No
  Sender: FDA-Public Use
  Company Number: None

PATIENT

DRUGS (2)
  1. ARIPIPRAZOLE [Suspect]
     Dosage: 30 MG EVERY DAY PO
     Route: 048
     Dates: start: 20071105, end: 20090223
  2. CHLORPROMAZINE [Suspect]
     Dosage: 100 MG AT BEDTIME PO
     Route: 048
     Dates: start: 20020506

REACTIONS (2)
  - EXTRAPYRAMIDAL DISORDER [None]
  - MUSCLE TWITCHING [None]
